FAERS Safety Report 10956887 (Version 3)
Quarter: 2015Q2

REPORT INFORMATION
  Report Type: Spontaneous
  Country: DE (occurrence: None)
  Receive Date: 20150324
  Receipt Date: 20150617
  Transmission Date: 20150821
  Serious: Yes (Other)
  Sender: FDA-Public Use
  Company Number: DE2015GSK036292

PATIENT
  Age: 69 Year
  Sex: Male
  Weight: 85 kg

DRUGS (3)
  1. URSOFALK (ACIDUM URSODEOXYCHOLICUM) [Concomitant]
  2. TIVICAY [Suspect]
     Active Substance: DOLUTEGRAVIR SODIUM
     Indication: HIV INFECTION
     Dates: start: 20141126, end: 20150114
  3. WOBENZYM (ANANAS COMOSUS + CHYMOTRYPSIN + LIPASE + PANCREATIN + PAPAIN + RUTOSIDE + TRYPSIN) [Concomitant]

REACTIONS (2)
  - Constipation [None]
  - Ileus paralytic [None]

NARRATIVE: CASE EVENT DATE: 20150103
